FAERS Safety Report 9726182 (Version 1)
Quarter: 2013Q4

REPORT INFORMATION
  Report Type: Report from Study
  Country: DE (occurrence: DE)
  Receive Date: 20131203
  Receipt Date: 20131203
  Transmission Date: 20140711
  Serious: Yes (Death, Hospitalization)
  Sender: FDA-Public Use
  Company Number: DE-CELGENEUS-062-21660-13114245

PATIENT
  Sex: Female

DRUGS (2)
  1. ABRAXANE [Suspect]
     Indication: BREAST CANCER METASTATIC
     Dosage: 150 MILLIGRAM/SQ. METER
     Route: 050
     Dates: start: 20120717, end: 20120911
  2. ABRAXANE [Suspect]
     Dosage: 120 MILLIGRAM/SQ. METER
     Route: 050
     Dates: start: 20121016, end: 20130114

REACTIONS (2)
  - Death [Fatal]
  - Metastases to lung [Not Recovered/Not Resolved]
